FAERS Safety Report 24959016 (Version 1)
Quarter: 2025Q1

REPORT INFORMATION
  Report Type: Spontaneous
  Country: CA (occurrence: CA)
  Receive Date: 20250212
  Receipt Date: 20250212
  Transmission Date: 20250408
  Serious: Yes (Other)
  Sender: ROCHE
  Company Number: CA-002147023-NVSC2025CA020576

PATIENT
  Age: 36 Year
  Sex: Female

DRUGS (4)
  1. OMALIZUMAB [Suspect]
     Active Substance: OMALIZUMAB
     Indication: Chronic spontaneous urticaria
     Route: 065
  2. CEFADROXIL [Concomitant]
     Active Substance: CEFADROXIL
     Indication: Localised infection
     Dosage: UNK, QD
     Route: 065
  3. NAPROXEN [Concomitant]
     Active Substance: NAPROXEN
     Indication: Product used for unknown indication
     Route: 065
  4. TOLTERODINE [Concomitant]
     Active Substance: TOLTERODINE
     Indication: Product used for unknown indication
     Route: 065

REACTIONS (5)
  - Ear canal injury [Unknown]
  - Face injury [Unknown]
  - Limb injury [Unknown]
  - Neck injury [Unknown]
  - Paranasal sinus injury [Unknown]
